FAERS Safety Report 24023943 (Version 3)
Quarter: 2024Q3

REPORT INFORMATION
  Report Type: Spontaneous
  Country: SE (occurrence: SE)
  Receive Date: 20240627
  Receipt Date: 20240729
  Transmission Date: 20241017
  Serious: Yes (Other)
  Sender: ROCHE
  Company Number: SE-ROCHE-3575570

PATIENT
  Age: 88 Year
  Sex: Female

DRUGS (4)
  1. VABYSMO [Suspect]
     Active Substance: FARICIMAB\FARICIMAB-SVOA
     Indication: Age-related macular degeneration
     Dosage: MOST RECENT DOSE: 08/MAY/2024,6 MG/0.05 ML
     Route: 050
     Dates: start: 20240227, end: 20240508
  2. VABYSMO [Suspect]
     Active Substance: FARICIMAB\FARICIMAB-SVOA
     Route: 050
  3. TIMOLOL MALEATE [Concomitant]
     Active Substance: TIMOLOL MALEATE
     Route: 065
  4. TIMOLOL MALEATE [Concomitant]
     Active Substance: TIMOLOL MALEATE

REACTIONS (7)
  - Pain [Unknown]
  - Eye inflammation [Unknown]
  - Vision blurred [Unknown]
  - Visual impairment [Unknown]
  - Off label use [Unknown]
  - Product complaint [Unknown]
  - Retinal vasculitis [Not Recovered/Not Resolved]

NARRATIVE: CASE EVENT DATE: 20240511
